FAERS Safety Report 21162647 (Version 1)
Quarter: 2022Q3

REPORT INFORMATION
  Report Type: Spontaneous
  Country: US (occurrence: US)
  Receive Date: 20220802
  Receipt Date: 20220802
  Transmission Date: 20221027
  Serious: No
  Sender: FDA-Public Use
  Company Number: US-Blueprint Medicines Corporation-304

PATIENT
  Sex: Female

DRUGS (1)
  1. AYVAKIT [Suspect]
     Active Substance: AVAPRITINIB
     Indication: Systemic mastocytosis
     Route: 048
     Dates: start: 20220211

REACTIONS (7)
  - Dyspepsia [Unknown]
  - Visual impairment [Unknown]
  - Balance disorder [Unknown]
  - Ageusia [Unknown]
  - Weight decreased [Unknown]
  - Lacrimation increased [Unknown]
  - Product dose confusion [Unknown]
